FAERS Safety Report 6666955-X (Version None)
Quarter: 2010Q2

REPORT INFORMATION
  Report Type: 
  Country: None (occurrence: None)
  Receive Date: 20100405
  Receipt Date: 20100324
  Transmission Date: 20101027
  Serious: Yes (Other)
  Sender: FDA-Public Use
  Company Number: PHHY2010TH15950

PATIENT
  Sex: Female

DRUGS (1)
  1. GLEEVEC [Suspect]
     Indication: CHRONIC MYELOID LEUKAEMIA
     Dosage: 400 MG
     Dates: start: 20091216, end: 20100302

REACTIONS (7)
  - DERMATITIS EXFOLIATIVE [None]
  - ERYTHEMA [None]
  - EYELID OEDEMA [None]
  - LYMPHADENOPATHY [None]
  - OCULAR ICTERUS [None]
  - OEDEMA PERIPHERAL [None]
  - RASH MACULO-PAPULAR [None]
